FAERS Safety Report 25418563 (Version 1)
Quarter: 2025Q2

REPORT INFORMATION
  Report Type: Spontaneous
  Country: RU (occurrence: RU)
  Receive Date: 20250610
  Receipt Date: 20250610
  Transmission Date: 20250717
  Serious: Yes (Hospitalization, Other)
  Sender: FRESENIUS KABI
  Company Number: RU-FreseniusKabi-FK202507847

PATIENT
  Age: 39 Year
  Sex: Female
  Weight: 55 kg

DRUGS (11)
  1. PROPOFOL [Suspect]
     Active Substance: PROPOFOL
     Indication: Anaesthesia
     Route: 042
     Dates: start: 20250207, end: 20250207
  2. SODIUM CHLORIDE [Concomitant]
     Active Substance: SODIUM CHLORIDE
     Indication: Product used for unknown indication
     Route: 042
     Dates: start: 20250207, end: 20250207
  3. ACETAMINOPHEN [Concomitant]
     Active Substance: ACETAMINOPHEN
     Indication: Product used for unknown indication
     Route: 042
     Dates: start: 20250207, end: 20250207
  4. KETOPROFEN [Concomitant]
     Active Substance: KETOPROFEN
     Indication: Product used for unknown indication
     Route: 042
     Dates: start: 20250207, end: 20250207
  5. TRANEXAMIC ACID [Concomitant]
     Active Substance: TRANEXAMIC ACID
     Indication: Product used for unknown indication
     Route: 042
     Dates: start: 20250207, end: 20250207
  6. ONDANSETRON [Concomitant]
     Active Substance: ONDANSETRON
     Indication: Product used for unknown indication
     Route: 042
     Dates: start: 20250207, end: 20250207
  7. CALCIUM GLUCONATE [Concomitant]
     Active Substance: CALCIUM GLUCONATE
     Indication: Product used for unknown indication
     Route: 042
     Dates: start: 20250207, end: 20250207
  8. ETHAMSYLATE [Concomitant]
     Active Substance: ETHAMSYLATE
     Indication: Product used for unknown indication
     Route: 042
     Dates: start: 20250207, end: 20250207
  9. FOLLITROPIN ALFA [Concomitant]
     Active Substance: FOLLITROPIN ALFA
     Indication: Product used for unknown indication
     Route: 058
     Dates: start: 20250124, end: 20250130
  10. MENOTROPINS [Concomitant]
     Active Substance: MENOTROPINS
     Indication: Product used for unknown indication
     Route: 058
     Dates: start: 20250124, end: 20250130
  11. CETRORELIX [Concomitant]
     Active Substance: CETRORELIX
     Indication: Product used for unknown indication
     Route: 058
     Dates: start: 20250203, end: 20250206

REACTIONS (5)
  - Headache [Recovering/Resolving]
  - Vomiting [Recovering/Resolving]
  - Pyrexia [Recovering/Resolving]
  - Bacterial infection [Recovering/Resolving]
  - Sepsis [Recovering/Resolving]

NARRATIVE: CASE EVENT DATE: 20250207
